FAERS Safety Report 19513717 (Version 1)
Quarter: 2021Q3

REPORT INFORMATION
  Report Type: Spontaneous
  Country: CN (occurrence: CN)
  Receive Date: 20210709
  Receipt Date: 20210709
  Transmission Date: 20211014
  Serious: Yes (Other)
  Sender: FDA-Public Use
  Company Number: CN-BAXTER-2021BAX019211

PATIENT
  Age: 40 Year
  Sex: Female
  Weight: 51 kg

DRUGS (12)
  1. 0.9% SODIUM CHLORIDE INJECTION [Suspect]
     Active Substance: SODIUM CHLORIDE
     Dosage: FIRST CHEMOTHERAPY OF EC REGIMEN PHARMORUBICIN 140 MG + 0.9% SODIUM CHLORIDE 100 ML
     Route: 041
     Dates: start: 20210622, end: 20210622
  2. TROPISETRON [Concomitant]
     Active Substance: TROPISETRON
     Indication: ANTIEMETIC SUPPORTIVE CARE
     Dosage: BEFORE CHEMOTHERAPY: TROPISETRON INJECTION 5MG + 0.9% SODIUM CHLORIDE 5ML
     Route: 065
     Dates: start: 20210622
  3. OMEPRAZOLE SODIUM [Concomitant]
     Active Substance: OMEPRAZOLE SODIUM
     Indication: PROPHYLAXIS OF NAUSEA AND VOMITING
     Dosage: OMEPRAZOLE SODIUM FOR INJECTION 40MG + 0.9% NS 100ML
     Route: 065
     Dates: start: 20210622
  4. ENDOXAN [Suspect]
     Active Substance: CYCLOPHOSPHAMIDE
     Indication: BREAST CANCER
     Dosage: FIRST CHEMOTHERAPY OF EC REGIMEN: CYCLOPHOSPHAMIDE 0.85G + 0.9% SODIUM CHLORIDE INJECTION 100ML
     Route: 041
     Dates: start: 20210622, end: 20210622
  5. SODIUM CHLORIDE. [Concomitant]
     Active Substance: SODIUM CHLORIDE
     Indication: MEDICATION DILUTION
     Dosage: BEFORE CHEMOTHERAPY: TROPISETRON INJECTION 5MG + 0.9% SODIUM CHLORIDE 5ML
     Route: 065
     Dates: start: 20210622
  6. DEXAMETHASONE. [Concomitant]
     Active Substance: DEXAMETHASONE
     Indication: PROPHYLAXIS OF NAUSEA AND VOMITING
     Dosage: AFTER CHEMOTHERAPY
     Route: 040
     Dates: start: 20210622
  7. PHARMORUBICIN [Suspect]
     Active Substance: EPIRUBICIN
     Indication: BREAST CANCER
     Dosage: FIRST CHEMOTHERAPY OF EC REGIMEN PHARMORUBICIN 140 MG + 0.9% SODIUM CHLORIDE 100 ML
     Route: 041
     Dates: start: 20210622, end: 20210622
  8. TROPISETRON [Concomitant]
     Active Substance: TROPISETRON
     Indication: PROPHYLAXIS OF NAUSEA AND VOMITING
     Dosage: AFTER CHEMOTHERAPY: TROPISETRON INJECTION 5MG + 0.9% SODIUM CHLORIDE 5ML
     Route: 065
     Dates: start: 20210622
  9. 0.9% SODIUM CHLORIDE INJECTION [Suspect]
     Active Substance: SODIUM CHLORIDE
     Indication: MEDICATION DILUTION
     Dosage: FIRST CHEMOTHERAPY OF EC REGIMEN: CYCLOPHOSPHAMIDE 0.85G + 0.9% SODIUM CHLORIDE INJECTION 100ML
     Route: 041
     Dates: start: 20210622, end: 20210622
  10. SODIUM CHLORIDE. [Concomitant]
     Active Substance: SODIUM CHLORIDE
     Dosage: OMEPRAZOLE SODIUM FOR INJECTION 40MG + 0.9% NS 100ML
     Route: 065
     Dates: start: 20210622
  11. SODIUM CHLORIDE. [Concomitant]
     Active Substance: SODIUM CHLORIDE
     Dosage: AFTER CHEMOTHERAPY: TROPISETRON INJECTION 5MG + 0.9% SODIUM CHLORIDE 5ML
     Route: 065
     Dates: start: 20210622
  12. DEXAMETHASONE. [Concomitant]
     Active Substance: DEXAMETHASONE
     Indication: ANTIEMETIC SUPPORTIVE CARE
     Dosage: BEFORE CHEMOTHERAPY
     Route: 040
     Dates: start: 20210622

REACTIONS (2)
  - Vomiting [Recovering/Resolving]
  - Nausea [Recovering/Resolving]

NARRATIVE: CASE EVENT DATE: 20210622
